FAERS Safety Report 5594292-3 (Version None)
Quarter: 2008Q1

REPORT INFORMATION
  Report Type: 
  Country: None (occurrence: None)
  Receive Date: 20080115
  Receipt Date: 20080104
  Transmission Date: 20080703
  Serious: Yes (Hospitalization, Other)
  Sender: FDA-Public Use
  Company Number: GXKR2008CN00525

PATIENT
  Age: 32 Year
  Sex: Male

DRUGS (7)
  1. CYCLOSPORINE [Suspect]
     Indication: IMMUNOSUPPRESSION
  2. METHYLPREDNISOLONE [Suspect]
     Indication: IMMUNOSUPPRESSION
     Dosage: 100 MG, INTRAVENOUS, 20 MG, INTRAVENOUS
     Route: 042
  3. MYCOPHENOLATE MOFETIL [Suspect]
     Indication: IMMUNOSUPPRESSION
     Dosage: 1.5 G/DAY
  4. OFLOXACIN [Suspect]
     Indication: TUBERCULOSIS
  5. ISONIAZID [Suspect]
     Indication: TUBERCULOSIS
  6. RIFAPENTINE(RIFAPENTINE) [Suspect]
     Indication: TUBERCULOSIS
     Dosage: FROM 40 DAYS POST-OP TILL 9 MONTH
  7. ETHAMBUTOL HYDROCHLORIDE [Suspect]
     Indication: TUBERCULOSIS

REACTIONS (7)
  - ALANINE AMINOTRANSFERASE INCREASED [None]
  - CORYNEBACTERIUM INFECTION [None]
  - DRUG INTERACTION [None]
  - LIVER TRANSPLANT REJECTION [None]
  - PLEURAL EFFUSION [None]
  - TRANSPLANT REJECTION [None]
  - TUBERCULOSIS [None]
